FAERS Safety Report 10660804 (Version 2)
Quarter: 2015Q1

REPORT INFORMATION
  Report Type: Spontaneous
  Country: FR (occurrence: FR)
  Receive Date: 20141217
  Receipt Date: 20150203
  Transmission Date: 20150720
  Serious: No
  Sender: FDA-Public Use
  Company Number: FR-ALLERGAN-1425798US

PATIENT
  Age: 80 Year
  Sex: Female

DRUGS (3)
  1. TROSPIUM CHLORIDE UNK [Suspect]
     Active Substance: TROSPIUM CHLORIDE
     Indication: HYPERTONIC BLADDER
     Dosage: 40 MG, QD
     Route: 048
     Dates: start: 20070215, end: 20070220
  2. MICARDIS [Concomitant]
     Active Substance: TELMISARTAN
     Indication: HYPERTENSION
     Dosage: UNK
     Dates: start: 20070131, end: 20070220
  3. TROSPIUM CHLORIDE UNK [Suspect]
     Active Substance: TROSPIUM CHLORIDE
     Indication: URINARY INCONTINENCE

REACTIONS (5)
  - Confusional state [Recovered/Resolved with Sequelae]
  - Blood potassium decreased [Recovered/Resolved with Sequelae]
  - Dry mouth [Recovered/Resolved with Sequelae]
  - Nausea [Unknown]
  - Anticholinergic syndrome [Recovered/Resolved with Sequelae]

NARRATIVE: CASE EVENT DATE: 20070220
